FAERS Safety Report 4899955-0 (Version None)
Quarter: 2006Q1

REPORT INFORMATION
  Report Type: 
  Country: None (occurrence: None)
  Receive Date: 20060203
  Receipt Date: 20060124
  Transmission Date: 20060701
  Serious: Yes (Other)
  Sender: FDA-Public Use
  Company Number: GB-GLAXOSMITHKLINE-B0407696A

PATIENT

DRUGS (1)
  1. NIQUITIN CQ LOZENGE [Suspect]
     Route: 002

REACTIONS (2)
  - CHANGE OF BOWEL HABIT [None]
  - RECTAL HAEMORRHAGE [None]
